FAERS Safety Report 4716671-6 (Version None)
Quarter: 2005Q3

REPORT INFORMATION
  Report Type: 
  Country: None (occurrence: None)
  Receive Date: 20050714
  Receipt Date: 20050701
  Transmission Date: 20060218
  Serious: Yes (Hospitalization)
  Sender: FDA-Public Use
  Company Number: 2005082998

PATIENT
  Age: 83 Year
  Sex: Male
  Weight: 56.6996 kg

DRUGS (4)
  1. LIPITOR [Suspect]
     Indication: HYPERCHOLESTEROLAEMIA
     Dosage: ORAL
     Route: 048
     Dates: end: 20050501
  2. ACE INHIBITOR NOS (ACE INHIBITOR NOS) [Concomitant]
  3. AL LOTHER THERAPEUTIC PRODUCTS (ALL OTHER THERAPEUTIC PRODUCTS) [Concomitant]
  4. FOSINOPRIL SODIUM [Concomitant]

REACTIONS (1)
  - MYALGIA [None]
